FAERS Safety Report 4811927-0 (Version None)
Quarter: 2005Q4

REPORT INFORMATION
  Report Type: 
  Country: None (occurrence: None)
  Receive Date: 20051027
  Receipt Date: 20051027
  Transmission Date: 20060501
  Serious: Yes (Hospitalization)
  Sender: FDA-Public Use
  Company Number: None

PATIENT
  Age: 58 Year
  Sex: Male
  Weight: 64.8644 kg

DRUGS (1)
  1. CAPECITABINE    500MG [Suspect]
     Indication: NEOPLASM MALIGNANT
     Dosage: 500MG    5 TIMES DAILY  PO  (STARTING DATE UNCLEAR)
     Route: 048
     Dates: start: 20050701, end: 20050721

REACTIONS (1)
  - SKIN DISCOLOURATION [None]
